FAERS Safety Report 7040547-5 (Version None)
Quarter: 2010Q4

REPORT INFORMATION
  Report Type: 
  Country: None (occurrence: None)
  Receive Date: 20101006
  Receipt Date: 20100927
  Transmission Date: 20110411
  Serious: Yes (Death)
  Sender: FDA-Public Use
  Company Number: 015161

PATIENT
  Sex: Male

DRUGS (7)
  1. KEPPRA [Suspect]
     Indication: PARTIAL SEIZURES
     Dates: end: 20100101
  2. KEPPRA [Suspect]
     Indication: PARTIAL SEIZURES
     Dosage: (2000 MG BID)
  3. DECADRON [Concomitant]
  4. DILANTIN [Concomitant]
  5. TOPAMAX [Concomitant]
  6. COUMADIN [Concomitant]
  7. TRILEPTAL [Concomitant]

REACTIONS (6)
  - ASTROCYTOMA [None]
  - CEREBROVASCULAR ACCIDENT [None]
  - HEMIPARESIS [None]
  - HYPERTONIA [None]
  - MALIGNANT NEOPLASM PROGRESSION [None]
  - PARTIAL SEIZURES [None]
